FAERS Safety Report 7381501-3 (Version None)
Quarter: 2011Q1

REPORT INFORMATION
  Report Type: 
  Country: None (occurrence: None)
  Receive Date: 20110329
  Receipt Date: 20110318
  Transmission Date: 20110831
  Serious: Yes (Hospitalization, Disabling, Other)
  Sender: FDA-Public Use
  Company Number: US-MERCK-1012USA01315

PATIENT
  Age: 74 Year
  Sex: Female

DRUGS (2)
  1. FOSAMAX PLUS D [Suspect]
     Indication: OSTEOPOROSIS
     Route: 048
     Dates: start: 19940101, end: 20090701
  2. FOSAMAX [Suspect]
     Indication: OSTEOPOROSIS
     Route: 048
     Dates: start: 19940101, end: 20090129

REACTIONS (41)
  - FEMUR FRACTURE [None]
  - BRONCHITIS [None]
  - VITAMIN D DEFICIENCY [None]
  - REGURGITATION [None]
  - LOW TURNOVER OSTEOPATHY [None]
  - HYPOACUSIS [None]
  - FIBROSIS [None]
  - DYSPHONIA [None]
  - OSTEOPENIA [None]
  - ORAL DISORDER [None]
  - ERUCTATION [None]
  - ASPIRATION [None]
  - OSTEOPOROSIS [None]
  - HYPERCHOLESTEROLAEMIA [None]
  - VOCAL CORD PARESIS [None]
  - OSTEOSCLEROSIS [None]
  - SPINAL OSTEOARTHRITIS [None]
  - RESTLESS LEGS SYNDROME [None]
  - ARTHRITIS [None]
  - ANAEMIA [None]
  - CHRONIC OBSTRUCTIVE PULMONARY DISEASE [None]
  - DYSPNOEA [None]
  - PRODUCTIVE COUGH [None]
  - DEPRESSION [None]
  - GROIN PAIN [None]
  - EMPHYSEMA [None]
  - DRUG INEFFECTIVE [None]
  - VOCAL CORD ATROPHY [None]
  - ANXIETY [None]
  - LARYNGEAL DISORDER [None]
  - MULTIPLE FRACTURES [None]
  - SINUSITIS [None]
  - CATARACT [None]
  - SCOLIOSIS [None]
  - HYPERREFLEXIA [None]
  - WEIGHT DECREASED [None]
  - RIB FRACTURE [None]
  - LUNG NEOPLASM [None]
  - DIVERTICULUM INTESTINAL [None]
  - BRONCHOSPASM [None]
  - BONE DENSITY DECREASED [None]
